FAERS Safety Report 4946587-1 (Version None)
Quarter: 2006Q1

REPORT INFORMATION
  Report Type: 
  Country: None (occurrence: None)
  Receive Date: 20060317
  Receipt Date: 20060315
  Transmission Date: 20060701
  Serious: Yes (Death, Hospitalization)
  Sender: FDA-Public Use
  Company Number: FR-GLAXOSMITHKLINE-B0415812A

PATIENT
  Age: 71 Year
  Sex: Female

DRUGS (4)
  1. CLAMOXYL [Suspect]
     Indication: URINARY TRACT INFECTION
     Route: 048
     Dates: start: 20050901, end: 20050906
  2. OFLOCET [Suspect]
     Indication: URINARY TRACT INFECTION
     Route: 048
     Dates: start: 20050901, end: 20050906
  3. CHELAFER [Suspect]
     Indication: HAEMOCHROMATOSIS
     Dosage: 1UNIT PER DAY
     Route: 048
  4. ROVAMYCINE [Concomitant]
     Indication: FURUNCLE
     Route: 048
     Dates: start: 20050917

REACTIONS (25)
  - AGRANULOCYTOSIS [None]
  - ATRIAL TACHYCARDIA [None]
  - BLOOD PRESSURE SYSTOLIC INCREASED [None]
  - DIARRHOEA [None]
  - ERYSIPELAS [None]
  - FURUNCLE [None]
  - HAEMODYNAMIC TEST ABNORMAL [None]
  - HYPOTENSION [None]
  - LOCALISED INFECTION [None]
  - LOSS OF CONSCIOUSNESS [None]
  - LYMPHADENOPATHY [None]
  - LYMPHOEDEMA [None]
  - NECK PAIN [None]
  - ODYNOPHAGIA [None]
  - OEDEMA GENITAL [None]
  - ORAL CANDIDIASIS [None]
  - PAROTID GLAND ENLARGEMENT [None]
  - PHOTOPHOBIA [None]
  - PYREXIA [None]
  - SALIVARY GLAND PAIN [None]
  - SEPSIS [None]
  - SKIN DISCOLOURATION [None]
  - SYNCOPE [None]
  - VULVAL ABSCESS [None]
  - VULVAL DISORDER [None]
